FAERS Safety Report 13072734 (Version 3)
Quarter: 2020Q1

REPORT INFORMATION
  Report Type: Spontaneous
  Country: US (occurrence: US)
  Receive Date: 20161229
  Receipt Date: 20200108
  Transmission Date: 20200409
  Serious: Yes (Other)
  Sender: FDA-Public Use
  Company Number: US-SA-2016SA206065

PATIENT
  Age: 55 Year
  Sex: Female
  Weight: 101.6 kg

DRUGS (16)
  1. ATENOLOL. [Concomitant]
     Active Substance: ATENOLOL
  2. ZOCOR [Concomitant]
     Active Substance: SIMVASTATIN
  3. HYDROCHLOROTHIAZIDE WITH TRIAMTERENE [Concomitant]
     Active Substance: HYDROCHLOROTHIAZIDE\TRIAMTERENE
  4. TAXOTERE [Suspect]
     Active Substance: DOCETAXEL
     Dosage: 100 MG,QCY
     Route: 042
     Dates: start: 20070101, end: 20070101
  5. FLUOROURACIL. [Concomitant]
     Active Substance: FLUOROURACIL
     Indication: BREAST CANCER FEMALE
  6. MS CONTIN [Concomitant]
     Active Substance: MORPHINE SULFATE
  7. TAXOTERE [Suspect]
     Active Substance: DOCETAXEL
     Indication: BREAST CANCER FEMALE
     Dosage: 100 MG,QCY
     Route: 042
     Dates: start: 20060915, end: 20060915
  8. CYCLOPHOSPHAMIDE. [Concomitant]
     Active Substance: CYCLOPHOSPHAMIDE
     Indication: BREAST CANCER FEMALE
  9. FEMARA [Concomitant]
     Active Substance: LETROZOLE
  10. METFORMIN HYDROCHLORIDE. [Concomitant]
     Active Substance: METFORMIN HYDROCHLORIDE
  11. TAXOTERE [Suspect]
     Active Substance: DOCETAXEL
     Dosage: 100 MG,QCY
     Route: 042
  12. EPIRUBICIN [Concomitant]
     Active Substance: EPIRUBICIN
     Indication: BREAST CANCER FEMALE
  13. LISINOPRIL. [Concomitant]
     Active Substance: LISINOPRIL
  14. GLYBURIDE. [Concomitant]
     Active Substance: GLYBURIDE
  15. HYDROCHLOROTHIAZIDE. [Concomitant]
     Active Substance: HYDROCHLOROTHIAZIDE
  16. MORPHINE SULPHATE [Concomitant]
     Active Substance: MORPHINE SULFATE

REACTIONS (5)
  - Alopecia [Not Recovered/Not Resolved]
  - Pain [Unknown]
  - Impaired quality of life [Unknown]
  - Emotional distress [Unknown]
  - Anxiety [Unknown]

NARRATIVE: CASE EVENT DATE: 20070102
